FAERS Safety Report 6633116-X (Version None)
Quarter: 2010Q1

REPORT INFORMATION
  Report Type: 
  Country: None (occurrence: None)
  Receive Date: 20100312
  Receipt Date: 20100302
  Transmission Date: 20100710
  Serious: Yes (Disabling, Other)
  Sender: FDA-Public Use
  Company Number: PHHY2010PA03934

PATIENT
  Sex: Female

DRUGS (3)
  1. ZOMETA [Suspect]
     Dosage: 34 CYCLES
     Dates: start: 20050801
  2. ZOMETA [Suspect]
     Dosage: 4 MG, QMO
     Dates: start: 20060101, end: 20091201
  3. AROMASIN [Concomitant]
     Indication: BREAST CANCER
     Dosage: 25 MG DAILY
     Route: 048
     Dates: start: 20090701

REACTIONS (7)
  - BONE PAIN [None]
  - GINGIVAL INFECTION [None]
  - HYPOPHAGIA [None]
  - OSTEONECROSIS [None]
  - PAIN [None]
  - SENSORY LOSS [None]
  - TOOTHACHE [None]
